FAERS Safety Report 8085003-0 (Version None)
Quarter: 2012Q1

REPORT INFORMATION
  Report Type: 
  Country: None (occurrence: None)
  Receive Date: 20120128
  Receipt Date: 20110323
  Transmission Date: 20120608
  Serious: No
  Sender: FDA-Public Use
  Company Number: US-ABBOTT-11P-163-0713919-00

PATIENT
  Sex: Male
  Weight: 94.432 kg

DRUGS (2)
  1. HUMIRA [Suspect]
     Indication: CROHN'S DISEASE
     Dates: start: 20100101
  2. IMODIUM [Concomitant]
     Indication: CROHN'S DISEASE

REACTIONS (2)
  - CROHN'S DISEASE [None]
  - RASH PAPULAR [None]
